FAERS Safety Report 7312536-4 (Version None)
Quarter: 2011Q1

REPORT INFORMATION
  Report Type: 
  Country: None (occurrence: None)
  Receive Date: 20110224
  Receipt Date: 20110221
  Transmission Date: 20110831
  Serious: Yes (Death, Other)
  Sender: FDA-Public Use
  Company Number: US-B.I. PHARMACEUTICALS,INC./RIDGEFIELD-2011-BP-01444BP

PATIENT
  Sex: Male
  Weight: 86.64 kg

DRUGS (6)
  1. PRAVASTATIN [Concomitant]
  2. VALIUM [Concomitant]
  3. PRADAXA [Suspect]
     Indication: ATRIAL FIBRILLATION
     Dosage: 300 MG
     Dates: start: 20101116
  4. MORPHINE SULFATE [Concomitant]
  5. FOSINOPRIL SODIUM [Concomitant]
  6. DILTIAZEM [Concomitant]

REACTIONS (5)
  - BARRETT'S OESOPHAGUS [None]
  - RECTAL HAEMORRHAGE [None]
  - INTERNATIONAL NORMALISED RATIO [None]
  - GASTROINTESTINAL HAEMORRHAGE [None]
  - ANAEMIA [None]
